FAERS Safety Report 9701507 (Version 3)
Quarter: 2014Q1

REPORT INFORMATION
  Report Type: Report from Study
  Country: US (occurrence: US)
  Receive Date: 20131121
  Receipt Date: 20140122
  Transmission Date: 20141002
  Serious: Yes (Disabling)
  Sender: FDA-Public Use
  Company Number: US-JNJFOC-20131000581

PATIENT
  Sex: Male

DRUGS (3)
  1. SIMPONI [Suspect]
     Indication: PRODUCT USED FOR UNKNOWN INDICATION
     Route: 058
     Dates: start: 20121119
  2. PREDNISONE [Concomitant]
     Route: 048
  3. PROTONIX [Concomitant]
     Route: 065

REACTIONS (3)
  - Psoriatic arthropathy [Unknown]
  - Drug dose omission [Recovered/Resolved]
  - Device malfunction [Unknown]
